FAERS Safety Report 4698733-5 (Version None)
Quarter: 2005Q2

REPORT INFORMATION
  Report Type: 
  Country: None (occurrence: None)
  Receive Date: 20050621
  Receipt Date: 20050228
  Transmission Date: 20051028
  Serious: Yes (Other)
  Sender: FDA-Public Use
  Company Number: 2005002297

PATIENT
  Age: 66 Year
  Sex: Male
  Weight: 63.5036 kg

DRUGS (5)
  1. VFEND [Suspect]
     Indication: ASPERGILLOSIS
     Dosage: 400 MG (200 MG, 2 IN 1 D), ORAL
     Route: 048
     Dates: start: 20041206
  2. ATENOLOL [Concomitant]
  3. ATORVASTATIN CALCIUM [Concomitant]
  4. ALPRAZOLAM [Concomitant]
  5. AMPHOTERICIN B [Concomitant]

REACTIONS (2)
  - DIZZINESS [None]
  - JOINT SWELLING [None]
